FAERS Safety Report 4464159-2 (Version None)
Quarter: 2004Q3

REPORT INFORMATION
  Report Type: 
  Country: None (occurrence: None)
  Receive Date: 20040930
  Receipt Date: 20040930
  Transmission Date: 20050211
  Serious: Yes (Other)
  Sender: FDA-Public Use
  Company Number: None

PATIENT
  Age: 5 Year
  Sex: Female
  Weight: 22.1 kg

DRUGS (7)
  1. CARBOPLATIN [Suspect]
     Indication: GLIOMA
     Dosage: 175 MG/M2 Q WEEKLY, IV
     Route: 042
     Dates: start: 20040506, end: 20040913
  2. KCL TAB [Concomitant]
  3. MG [Concomitant]
  4. VINCRISTINE [Concomitant]
  5. ONDANSETRON [Concomitant]
  6. BENADRYL [Concomitant]
  7. HYDROCORTISONE [Concomitant]

REACTIONS (12)
  - ANXIETY [None]
  - COUGH [None]
  - DRUG INTOLERANCE [None]
  - EYE SWELLING [None]
  - FLUSHING [None]
  - INFUSION RELATED REACTION [None]
  - MOOD ALTERED [None]
  - NAUSEA [None]
  - OXYGEN SATURATION DECREASED [None]
  - RASH GENERALISED [None]
  - SWELLING FACE [None]
  - WHEEZING [None]
